FAERS Safety Report 7102972-3 (Version None)
Quarter: 2010Q4

REPORT INFORMATION
  Report Type: 
  Country: None (occurrence: None)
  Receive Date: 20101108
  Receipt Date: 20101026
  Transmission Date: 20110411
  Serious: Yes (Other)
  Sender: FDA-Public Use
  Company Number: 741162

PATIENT
  Age: 68 Year
  Sex: Female

DRUGS (2)
  1. METHOTREXATE [Suspect]
     Indication: RHEUMATOID ARTHRITIS
     Dosage: 15 MG/WEEK
  2. DEFLAZACORT [Suspect]
     Indication: RHEUMATOID ARTHRITIS
     Dosage: 5 MG MILLIGRAM(S), DAY

REACTIONS (5)
  - COUGH [None]
  - HYPONATRAEMIA [None]
  - NORMOCHROMIC NORMOCYTIC ANAEMIA [None]
  - RHONCHI [None]
  - STRONGYLOIDIASIS [None]
